FAERS Safety Report 4700309-8 (Version None)
Quarter: 2005Q2

REPORT INFORMATION
  Report Type: 
  Country: None (occurrence: None)
  Receive Date: 20050627
  Receipt Date: 20050613
  Transmission Date: 20051028
  Serious: Yes (Congenital Anomaly)
  Sender: FDA-Public Use
  Company Number: US-MERCK-0506USA03353

PATIENT
  Sex: Female

DRUGS (1)
  1. ZOCOR [Suspect]

REACTIONS (4)
  - CONGENITAL ANOMALY [None]
  - FOETAL GROWTH RETARDATION [None]
  - SPEECH DISORDER [None]
  - WEIGHT GAIN POOR [None]
